FAERS Safety Report 10410444 (Version 1)
Quarter: 2014Q3

REPORT INFORMATION
  Report Type: Spontaneous
  Country: GB (occurrence: None)
  Receive Date: 20140708
  Receipt Date: 20140708
  Transmission Date: 20150326
  Serious: Yes (Life-Threatening)
  Sender: FDA-Public Use
  Company Number: AUR-APL-2014-06191

PATIENT
  Age: 66 Year
  Sex: Male

DRUGS (3)
  1. OXYCODONE (OXYCODONE) [Concomitant]
     Active Substance: OXYCODONE
  2. CO-AMOXICLAV [Suspect]
     Active Substance: AMOXICILLIN\CLAVULANIC ACID
     Indication: NEUTROPENIC SEPSIS
     Route: 048
     Dates: start: 20140506, end: 20140515
  3. TAZOCIN (PIPERACILLIN SODIUM, TAZOBACTAM SODIUM) [Concomitant]

REACTIONS (3)
  - Acute myeloid leukaemia [None]
  - Clostridium difficile infection [None]
  - Diarrhoea [None]

NARRATIVE: CASE EVENT DATE: 20140516
